FAERS Safety Report 7667637-8 (Version None)
Quarter: 2011Q3

REPORT INFORMATION
  Report Type: 
  Country: None (occurrence: None)
  Receive Date: 20110806
  Receipt Date: 20110311
  Transmission Date: 20111222
  Serious: No
  Sender: FDA-Public Use
  Company Number: US-ABBOTT-11P-163-0710774-00

PATIENT
  Sex: Male
  Weight: 150.27 kg

DRUGS (7)
  1. SIMCOR [Suspect]
     Indication: PRODUCT USED FOR UNKNOWN INDICATION
     Dosage: TAKES AT THE SAME TIME AS NIASPAN
  2. LOVAZA [Concomitant]
     Indication: PRODUCT USED FOR UNKNOWN INDICATION
  3. NIASPAN [Suspect]
     Indication: HIGH DENSITY LIPOPROTEIN DECREASED
  4. ASPIRIN [Concomitant]
     Indication: PRODUCT USED FOR UNKNOWN INDICATION
     Dosage: TAKES AT THE SAME TIME AS NIASPAN
  5. NIASPAN [Suspect]
     Indication: LOW DENSITY LIPOPROTEIN INCREASED
     Dosage: AT BEDTIME
     Dates: start: 20110225
  6. CELEXTA [Concomitant]
     Indication: PRODUCT USED FOR UNKNOWN INDICATION
  7. VIT D [Concomitant]
     Indication: PRODUCT USED FOR UNKNOWN INDICATION

REACTIONS (2)
  - BURNING SENSATION [None]
  - FLUSHING [None]
